FAERS Safety Report 5646400-3 (Version None)
Quarter: 2008Q1

REPORT INFORMATION
  Report Type: 
  Country: None (occurrence: None)
  Receive Date: 20080227
  Receipt Date: 20080227
  Transmission Date: 20080703
  Serious: Yes (Hospitalization)
  Sender: FDA-Public Use
  Company Number: None

PATIENT
  Age: 4 Year
  Sex: Male
  Weight: 19.5047 kg

DRUGS (1)
  1. TAMIFLU [Suspect]
     Indication: INFLUENZA
     Dosage: 45 MG 2X DAY  ONE TIME
     Dates: start: 20080225, end: 20080225

REACTIONS (2)
  - ABNORMAL BEHAVIOUR [None]
  - DYSKINESIA [None]
